FAERS Safety Report 26081186 (Version 1)
Quarter: 2025Q4

REPORT INFORMATION
  Report Type: Spontaneous
  Country: US (occurrence: US)
  Receive Date: 20251124
  Receipt Date: 20251124
  Transmission Date: 20260117
  Serious: No
  Sender: SPECGX
  Company Number: US-SPECGX-T202500809

PATIENT
  Sex: Male

DRUGS (5)
  1. DEXTROAMPHETAMINE SACCHARATE, AMPHETAMINE ASPARTATE, DEXTROAMPHETAMINE [Suspect]
     Active Substance: AMPHETAMINE ASPARTATE\AMPHETAMINE SULFATE\DEXTROAMPHETAMINE SACCHARATE\DEXTROAMPHETAMINE SULFATE
     Indication: Attention deficit hyperactivity disorder
     Dosage: 20 MILLIGRAM, TID
     Route: 065
     Dates: start: 202202
  2. DEXTROAMPHETAMINE SACCHARATE, AMPHETAMINE ASPARTATE, DEXTROAMPHETAMINE [Suspect]
     Active Substance: AMPHETAMINE ASPARTATE\AMPHETAMINE SULFATE\DEXTROAMPHETAMINE SACCHARATE\DEXTROAMPHETAMINE SULFATE
     Dosage: 20 MILLIGRAM, TID
     Route: 065
     Dates: start: 20250319
  3. TRAZODONE [Concomitant]
     Active Substance: TRAZODONE HYDROCHLORIDE
     Indication: Sleep disorder
     Dosage: 15 MILLIGRAM
     Route: 065
  4. LEXAPRO [Concomitant]
     Active Substance: ESCITALOPRAM OXALATE
     Indication: Anxiety
     Dosage: UNK
     Route: 065
  5. CLONAZEPAM [Concomitant]
     Active Substance: CLONAZEPAM
     Indication: Anxiety
     Dosage: UNK
     Route: 065

REACTIONS (19)
  - Anxiety [Not Recovered/Not Resolved]
  - Mental fatigue [Not Recovered/Not Resolved]
  - Brain fog [Not Recovered/Not Resolved]
  - Memory impairment [Not Recovered/Not Resolved]
  - Feeling abnormal [Unknown]
  - Disturbance in attention [Not Recovered/Not Resolved]
  - Loss of personal independence in daily activities [Not Recovered/Not Resolved]
  - Tachyphrenia [Unknown]
  - Apathy [Not Recovered/Not Resolved]
  - Laziness [Not Recovered/Not Resolved]
  - Procrastination [Unknown]
  - Fatigue [Unknown]
  - Product quality issue [Unknown]
  - Therapeutic response changed [Not Recovered/Not Resolved]
  - Suspected product quality issue [Unknown]
  - Irritability [Unknown]
  - Product substitution issue [Not Recovered/Not Resolved]
  - Drug effect less than expected [Not Recovered/Not Resolved]
  - Drug ineffective [Unknown]

NARRATIVE: CASE EVENT DATE: 20230801
